FAERS Safety Report 5420787-9 (Version None)
Quarter: 2007Q3

REPORT INFORMATION
  Report Type: 
  Country: None (occurrence: None)
  Receive Date: 20070816
  Receipt Date: 20070720
  Transmission Date: 20080115
  Serious: Yes (Other)
  Sender: FDA-Public Use
  Company Number: 6036203

PATIENT
  Age: 26 Year
  Sex: Male

DRUGS (6)
  1. FLUCONAZOLE [Suspect]
     Indication: OPPORTUNISTIC INFECTION PROPHYLAXIS
     Dosage: 400 MG (400 MG, 1 IN 1 D)
  2. SULFAMETHOXAZOLE AND TRIMETHOPRIM [Concomitant]
  3. DIDANOSINE [Concomitant]
  4. LAMIVUDINE [Concomitant]
  5. ZIDOVUDINE [Concomitant]
  6. LOPINAVIR/RITONAVIR (RITONAVIR, LOPINAVIR) [Concomitant]

REACTIONS (7)
  - CRYPTOCOCCOSIS [None]
  - DEAFNESS [None]
  - DRUG WITHDRAWAL SYNDROME [None]
  - GRANULOMA [None]
  - IMMUNE RECONSTITUTION SYNDROME [None]
  - LYMPHADENOPATHY [None]
  - NUCLEAR MAGNETIC RESONANCE IMAGING BRAIN ABNORMAL [None]
